FAERS Safety Report 8579167-X (Version None)
Quarter: 2012Q3

REPORT INFORMATION
  Report Type: 
  Country: None (occurrence: None)
  Receive Date: 20120808
  Receipt Date: 20120802
  Transmission Date: 20120928
  Serious: Yes (Death, Hospitalization)
  Sender: FDA-Public Use
  Company Number: DE-GILEAD-2012-0057357

PATIENT
  Sex: Male

DRUGS (9)
  1. AMBRISENTAN [Suspect]
     Indication: PULMONARY HYPERTENSION
     Dosage: 5MG PER DAY
     Route: 048
     Dates: start: 20120405
  2. ACTONEL [Concomitant]
     Dosage: UNK
     Route: 048
     Dates: start: 20120101
  3. TORSEMIDE [Concomitant]
     Route: 048
  4. PANTOPRAZOLE [Concomitant]
     Route: 065
  5. SPIRONOLACTONE [Concomitant]
     Route: 048
  6. METOPROLOL                         /00376902/ [Concomitant]
     Route: 065
  7. AZATHIOPRINE                       /00001502/ [Concomitant]
     Indication: SYSTEMIC SCLEROSIS
     Dosage: UNK
     Dates: start: 20080101
  8. PREDNISOLONE [Concomitant]
     Indication: SYSTEMIC SCLEROSIS
     Dosage: UNK
     Route: 065
     Dates: start: 20080101
  9. RAMIPRIL [Concomitant]
     Route: 048

REACTIONS (1)
  - DEATH [None]
